FAERS Safety Report 9563767 (Version 2)
Quarter: 2013Q4

REPORT INFORMATION
  Report Type: Spontaneous
  Country: US (occurrence: None)
  Receive Date: 20130926
  Receipt Date: 20131002
  Transmission Date: 20140711
  Serious: Yes (Hospitalization, Congenital Anomaly, Other)
  Sender: FDA-Public Use
  Company Number: AUR-APL-2013-07910

PATIENT
  Age: 4 Day
  Sex: Female

DRUGS (17)
  1. FLUOXETINE [Suspect]
     Indication: ANXIETY
     Dosage: 80 MG (40 MG, 2 IN 1 D), TRANSPLACENTAL
     Route: 064
     Dates: start: 20080729
  2. FLUOXETINE [Suspect]
     Indication: DEPRESSION
     Dosage: 80 MG (40 MG, 2 IN 1 D), TRANSPLACENTAL
     Route: 064
     Dates: start: 20080729
  3. LISINOPRIL [Suspect]
     Indication: HYPERTENSION
     Route: 064
     Dates: start: 20080618
  4. METFORMIN [Suspect]
     Indication: DIABETES MELLITUS
     Route: 064
     Dates: start: 20080513
  5. IBUPROFEN [Suspect]
     Indication: PAIN
     Dosage: 2400 MG (800 MG, 3 IN 1), TRANSPLACENTAL
     Route: 064
     Dates: start: 20090305
  6. PROZAC [Suspect]
     Indication: ANXIETY
     Dosage: 80 MG (40 MG, 2 IN 1 D), TRANSPLACENTAL
     Route: 064
     Dates: start: 20080729
  7. PROZAC [Suspect]
     Indication: DEPRESSION
     Dosage: 80 MG (40 MG, 2 IN 1 D), TRANSPLACENTAL
     Route: 064
     Dates: start: 20080729
  8. PRAVASTATIN SODIUM [Suspect]
     Indication: BLOOD CHOLESTEROL INCREASED
     Route: 064
     Dates: start: 20081027
  9. INSULIN [Suspect]
     Indication: DIABETES MELLITUS
     Route: 064
  10. TOPAMAX [Suspect]
     Indication: MIGRAINE
     Route: 064
     Dates: start: 200812, end: 200904
  11. WELLBUTRIN [Suspect]
     Indication: PRODUCT USED FOR UNKNOWN INDICATION
     Route: 064
     Dates: start: 20090305
  12. LOPERAMIDE [Suspect]
     Indication: DIARRHOEA
     Dosage: 8 MG (2 MG, 4 IN  1 D), TRANSPLACENTAL
     Route: 064
     Dates: start: 20090205, end: 2008
  13. DESIPRAMINE [Suspect]
     Indication: DEPRESSION
     Dosage: 20 MG, (10 MG 2 IN 1 D), TRANSPLANTCAL
     Route: 064
     Dates: start: 20090205
  14. BUPROPION [Suspect]
     Indication: DEPRESSION
     Route: 064
     Dates: start: 20090305
  15. TRAZODONE [Suspect]
     Indication: DEPRESSION
     Route: 064
  16. TRAZODONE [Suspect]
     Indication: ANXIETY
     Route: 064
  17. PRENATABS RX [Concomitant]

REACTIONS (13)
  - Tachypnoea [None]
  - Hypoglycaemia [None]
  - Pneumonia [None]
  - Cardiac murmur [None]
  - Fluid overload [None]
  - Pain [None]
  - Emotional distress [None]
  - Patent ductus arteriosus [None]
  - Congenital anomaly [None]
  - Ventricular septal defect [None]
  - Maternal drugs affecting foetus [None]
  - Agitation neonatal [None]
  - Atrial septal defect [None]
